FAERS Safety Report 24066825 (Version 2)
Quarter: 2024Q3

REPORT INFORMATION
  Report Type: Report from Study
  Country: PT (occurrence: PT)
  Receive Date: 20240709
  Receipt Date: 20240715
  Transmission Date: 20241017
  Serious: Yes (Other)
  Sender: TRAVERE THERAPEUTICS
  Company Number: TRAVERE

PATIENT
  Age: 38 Year
  Sex: Male

DRUGS (5)
  1. FILSPARI [Suspect]
     Active Substance: SPARSENTAN
     Indication: IgA nephropathy
     Route: 050
     Dates: end: 20240320
  2. FILSPARI [Suspect]
     Active Substance: SPARSENTAN
     Route: 050
     Dates: start: 20240320, end: 20240520
  3. FILSPARI [Suspect]
     Active Substance: SPARSENTAN
     Dates: start: 202311
  4. DAPAGLIFLOZIN [Concomitant]
     Active Substance: DAPAGLIFLOZIN
     Indication: IgA nephropathy
     Route: 050
     Dates: start: 20220412
  5. LISINOPRIL [Concomitant]
     Active Substance: LISINOPRIL
     Indication: Proteinuria
     Route: 050
     Dates: start: 20190712, end: 20240219

REACTIONS (4)
  - Proteinuria [Unknown]
  - Proteinuria [Not Recovered/Not Resolved]
  - Proteinuria [Unknown]
  - Oedema peripheral [Unknown]

NARRATIVE: CASE EVENT DATE: 20231101
